FAERS Safety Report 8407086-8 (Version None)
Quarter: 2012Q2

REPORT INFORMATION
  Report Type: 
  Country: None (occurrence: None)
  Receive Date: 20120604
  Receipt Date: 20120530
  Transmission Date: 20120825
  Serious: Yes (Death, Hospitalization)
  Sender: FDA-Public Use
  Company Number: IN-PFIZER INC-2012070581

PATIENT
  Age: 61 Year
  Sex: Male

DRUGS (1)
  1. SUTENT [Suspect]
     Indication: METASTATIC RENAL CELL CARCINOMA
     Dosage: 50 MG, 1X/DAY
     Route: 048
     Dates: start: 20110526, end: 20120505

REACTIONS (5)
  - RASH ERYTHEMATOUS [None]
  - DRUG RESISTANCE [None]
  - MOUTH ULCERATION [None]
  - PYREXIA [None]
  - HAEMORRHAGE [None]
